FAERS Safety Report 8495577-3 (Version None)
Quarter: 2012Q3

REPORT INFORMATION
  Report Type: 
  Country: None (occurrence: None)
  Receive Date: 20120709
  Receipt Date: 20120629
  Transmission Date: 20120928
  Serious: Yes (Death)
  Sender: FDA-Public Use
  Company Number: DE-ROCHE-1063117

PATIENT
  Sex: Male
  Weight: 79.5 kg

DRUGS (2)
  1. CHLORAMBUCIL [Suspect]
     Indication: CHRONIC LYMPHOCYTIC LEUKAEMIA
     Dosage: GIVEN ON DAY 1 + 15 OF EACH CYCLE (28 DAYS)
     Route: 048
     Dates: start: 20111207, end: 20120411
  2. MABTHERA [Suspect]
     Indication: CHRONIC LYMPHOCYTIC LEUKAEMIA
     Dosage: GIVEN ON DAY 1 OF EACH CYCLE (28 DAYS)
     Route: 042
     Dates: start: 20111207, end: 20120328

REACTIONS (2)
  - ASTHENIA [None]
  - GENERAL PHYSICAL HEALTH DETERIORATION [None]
